FAERS Safety Report 9780870 (Version 1)
Quarter: 2013Q4

REPORT INFORMATION
  Report Type: Spontaneous
  Country: AU (occurrence: AU)
  Receive Date: 20131224
  Receipt Date: 20131224
  Transmission Date: 20140711
  Serious: Yes (Other)
  Sender: FDA-Public Use
  Company Number: PHHY2013AU149530

PATIENT
  Age: 75 Year
  Sex: Female

DRUGS (12)
  1. ACLASTA [Suspect]
     Dosage: UNK UKN, UNK
     Route: 042
  2. BETALOC [Concomitant]
     Dosage: UNK UKN, UNK
  3. CITRACAL [Concomitant]
     Dosage: UNK UKN, UNK
     Route: 042
  4. EZETROL [Concomitant]
     Dosage: UNK UKN, UNK
  5. LANOXIN PG [Concomitant]
     Dosage: UNK UKN, UNK
  6. MAREVAN [Concomitant]
     Dosage: UNK UKN, UNK
  7. PREDNISOLONE [Concomitant]
     Dosage: UNK UKN, UNK
  8. RAMIPRIL [Concomitant]
     Dosage: UNK UKN, UNK
  9. OSTEVIT-D [Concomitant]
     Dosage: UNK UKN, UNK
  10. PLAQUENIL [Concomitant]
     Dosage: UNK UKN, UNK
  11. PRAVACOR [Concomitant]
     Dosage: UNK UKN, UNK
  12. SANDOMIGRAN [Concomitant]
     Dosage: UNK UKN, UNK

REACTIONS (1)
  - Atypical femur fracture [Unknown]
